FAERS Safety Report 6537130-4 (Version None)
Quarter: 2010Q1

REPORT INFORMATION
  Report Type: 
  Country: None (occurrence: None)
  Receive Date: 20100114
  Receipt Date: 20100111
  Transmission Date: 20100710
  Serious: Yes (Death, Hospitalization)
  Sender: FDA-Public Use
  Company Number: DE-BAYER-200939366GPV

PATIENT
  Age: 67 Year
  Sex: Male
  Weight: 103 kg

DRUGS (15)
  1. SORAFENIB [Suspect]
     Indication: HEPATIC NEOPLASM MALIGNANT
     Route: 048
     Dates: start: 20090810, end: 20090911
  2. SORAFENIB [Suspect]
     Dates: start: 20090922, end: 20091117
  3. SPIRONOLACTONE [Concomitant]
     Dosage: AS USED: 50 MG
     Dates: start: 20090101
  4. AMLODIPINE [Concomitant]
  5. METOPROLOL [Concomitant]
     Dates: end: 20090828
  6. SIMVASTATIN [Concomitant]
  7. SPIRIVA [Concomitant]
     Dosage: 2 TUBE
  8. MCP [Concomitant]
     Dates: start: 20090810
  9. LOPEDIUM [Concomitant]
     Dates: start: 20090810
  10. PANTOPRAZOL [Concomitant]
     Dates: start: 20090801
  11. MIRTAZAPINE [Concomitant]
     Dosage: 15 MG
     Dates: start: 20090901
  12. CIPROFLOXACIN [Concomitant]
     Dosage: 250 MG
     Dates: start: 20091022
  13. ARCOXIA [Concomitant]
     Dosage: TOTAL DAILY DOSE: 90 MG
     Dates: start: 20091101, end: 20091117
  14. TRAMAL LONG [Concomitant]
     Dosage: TOTAL DAILY DOSE: 100 MG
     Dates: start: 20091101, end: 20091117
  15. JUINISTA [Concomitant]
     Dosage: TOTAL DAILY DOSE: 4 MG
     Dates: start: 20091117, end: 20091206

REACTIONS (6)
  - BLOOD BILIRUBIN INCREASED [None]
  - DECUBITUS ULCER [None]
  - FATIGUE [None]
  - HEPATIC CIRRHOSIS [None]
  - RASH [None]
  - RENAL FAILURE [None]
